APPROVED DRUG PRODUCT: PREZISTA
Active Ingredient: DARUNAVIR
Strength: 400MG **Federal Register determination that product was not discontinued or withdrawn for safety or effectiveness reasons**
Dosage Form/Route: TABLET;ORAL
Application: N021976 | Product #003
Applicant: JANSSEN PRODUCTS LP
Approved: Oct 21, 2008 | RLD: Yes | RS: No | Type: DISCN

PATENTS:
Patent 7700645 | Expires: Dec 26, 2026
Patent 7700645*PED | Expires: Jun 26, 2027